FAERS Safety Report 5282840-2 (Version None)
Quarter: 2007Q1

REPORT INFORMATION
  Report Type: 
  Country: None (occurrence: None)
  Receive Date: 20070329
  Receipt Date: 20070329
  Transmission Date: 20070707
  Serious: Yes (Hospitalization)
  Sender: FDA-Public Use
  Company Number: None

PATIENT
  Age: 78 Year
  Sex: Female
  Weight: 67 kg

DRUGS (2)
  1. LOVENOX [Suspect]
     Indication: DEEP VEIN THROMBOSIS
     Dosage: 70 MG Q 12 HRS SQ
     Route: 058
     Dates: start: 20070320, end: 20070322
  2. CEFTRIAXONE [Suspect]
     Indication: PNEUMONIA
     Dosage: 2GM Q24H IV
     Route: 042
     Dates: start: 20070318, end: 20070321

REACTIONS (2)
  - DEEP VEIN THROMBOSIS [None]
  - PANCYTOPENIA [None]
